FAERS Safety Report 4392595-1 (Version None)
Quarter: 2004Q3

REPORT INFORMATION
  Report Type: 
  Country: None (occurrence: None)
  Receive Date: 20040702
  Receipt Date: 20040629
  Transmission Date: 20050211
  Serious: Yes (Other)
  Sender: FDA-Public Use
  Company Number: THQ2004A00550

PATIENT
  Age: 84 Year
  Sex: Male

DRUGS (4)
  1. LANSOPRAZOLE [Suspect]
     Indication: DYSPEPSIA
     Dosage: 30-15 MG  PER ORAL
     Route: 048
     Dates: start: 20040602, end: 20040603
  2. SINEMET [Concomitant]
  3. CHLORMETHIAZOLE (CLOMETHIAZOLE) [Concomitant]
  4. QUETIAPINE [Concomitant]

REACTIONS (3)
  - CONFUSIONAL STATE [None]
  - MENTAL DISORDER [None]
  - PSYCHOTIC DISORDER [None]
